FAERS Safety Report 7271922 (Version 4)
Quarter: 2020Q3

REPORT INFORMATION
  Report Type: Report from Study
  Country: JP (occurrence: JP)
  Receive Date: 20100205
  Receipt Date: 20110926
  Transmission Date: 20201104
  Serious: Yes (Hospitalization)
  Sender: FDA-Public Use
  Company Number: JP-JNJFOC-20100110638

PATIENT
  Age: 61 Year
  Sex: Male
  Weight: 84.5 kg

DRUGS (18)
  1. POTASSIUM CHLORIDE. [Concomitant]
     Active Substance: POTASSIUM CHLORIDE
     Indication: ILL-DEFINED DISORDER
  2. ASPIRIN. [Suspect]
     Active Substance: ASPIRIN
     Indication: ACUTE CORONARY SYNDROME
     Route: 048
  3. NICORANDIL [Concomitant]
     Active Substance: NICORANDIL
     Indication: ILL-DEFINED DISORDER
  4. CEFAZOLIN [Concomitant]
     Active Substance: CEFAZOLIN
     Indication: ILL-DEFINED DISORDER
  5. ISOSORBIDE DINITRATE. [Concomitant]
     Active Substance: ISOSORBIDE DINITRATE
  6. CLOPIDOGREL [Suspect]
     Active Substance: CLOPIDOGREL BISULFATE
     Indication: ACUTE CORONARY SYNDROME
     Route: 048
  7. FAMOTIDINE. [Concomitant]
     Active Substance: FAMOTIDINE
     Indication: ILL-DEFINED DISORDER
  8. CARBOCISTEINE [Concomitant]
     Indication: ILL-DEFINED DISORDER
  9. ACETYLSALICYLIC ACID W/AMINOACETIC ACID [Concomitant]
     Indication: ILL-DEFINED DISORDER
  10. MAGNESIUM OXIDE. [Concomitant]
     Active Substance: MAGNESIUM OXIDE
  11. ROSUVASTATIN. [Concomitant]
     Active Substance: ROSUVASTATIN
     Indication: ILL-DEFINED DISORDER
  12. CEFDITOREN PIVOXIL. [Concomitant]
     Active Substance: CEFDITOREN PIVOXIL
  13. RIVAROXABAN [Suspect]
     Active Substance: RIVAROXABAN
     Indication: ACUTE CORONARY SYNDROME
     Route: 048
     Dates: start: 20090926
  14. NITROGLYCERIN. [Concomitant]
     Active Substance: NITROGLYCERIN
     Indication: ILL-DEFINED DISORDER
  15. PENTAZOCINE LACTATE [Concomitant]
     Active Substance: PENTAZOCINE LACTATE
     Indication: ILL-DEFINED DISORDER
  16. RIVAROXABAN [Suspect]
     Active Substance: RIVAROXABAN
     Route: 048
     Dates: start: 20090925, end: 20090925
  17. HEPARIN [Concomitant]
     Active Substance: HEPARIN SODIUM
     Indication: ILL-DEFINED DISORDER
  18. CEFCAPENE [Concomitant]
     Active Substance: CEFCAPENE
     Indication: ILL-DEFINED DISORDER

REACTIONS (1)
  - Gingival bleeding [Recovered/Resolved]

NARRATIVE: CASE EVENT DATE: 20100125
